FAERS Safety Report 8175543-8 (Version None)
Quarter: 2012Q1

REPORT INFORMATION
  Report Type: 
  Country: None (occurrence: None)
  Receive Date: 20120229
  Receipt Date: 20120222
  Transmission Date: 20120608
  Serious: Yes (Hospitalization)
  Sender: FDA-Public Use
  Company Number: JP-VERTEX PHARMACEUTICALS INC.-AE-2012-002736

PATIENT
  Age: 65 Year
  Sex: Female

DRUGS (5)
  1. TELAVIC (TELAPREVIR) [Suspect]
     Dates: start: 20120214
  2. TELAVIC (TELAPREVIR) [Suspect]
     Route: 048
     Dates: start: 20120124, end: 20120214
  3. PEGINTERFERON [Concomitant]
     Route: 058
     Dates: start: 20120124
  4. REBETOL [Concomitant]
     Route: 048
     Dates: start: 20120207
  5. REBETOL [Concomitant]
     Route: 048
     Dates: start: 20120124, end: 20120207

REACTIONS (5)
  - ANAEMIA [None]
  - NAUSEA [None]
  - DECREASED APPETITE [None]
  - MALAISE [None]
  - RASH [None]
